FAERS Safety Report 8384629 (Version 2)
Quarter: 2013Q2

REPORT INFORMATION
  Report Type: Spontaneous
  Country: US (occurrence: None)
  Receive Date: 20111221
  Receipt Date: 20121227
  Transmission Date: 20140414
  Serious: Yes (Hospitalization)
  Sender: FDA-Public Use
  Company Number: PHHY2011US48263

PATIENT
  Age: 51 Year
  Sex: Female

DRUGS (1)
  1. EXJADE [Suspect]
     Indication: SICKLE CELL ANAEMIA
     Dosage: 1500 MG, QD, ORAL
     Route: 048
     Dates: start: 20110524

REACTIONS (7)
  - SICKLE CELL ANAEMIA WITH CRISIS [None]
  - ABDOMINAL DISCOMFORT [None]
  - NAUSEA [None]
  - CONSTIPATION [None]
  - VISUAL IMPAIRMENT [None]
  - Malaise [None]
  - Discomfort [None]
